FAERS Safety Report 8351829-9 (Version None)
Quarter: 2012Q2

REPORT INFORMATION
  Report Type: 
  Country: None (occurrence: None)
  Receive Date: 20120511
  Receipt Date: 20120504
  Transmission Date: 20120825
  Serious: No
  Sender: FDA-Public Use
  Company Number: US-BIOGENIDEC-2012BI016246

PATIENT
  Age: 43 Year
  Sex: Female

DRUGS (2)
  1. TYSABRI [Suspect]
     Route: 042
     Dates: start: 20111201
  2. TYSABRI [Suspect]
     Indication: MULTIPLE SCLEROSIS
     Route: 042
     Dates: start: 20110105, end: 20110105

REACTIONS (10)
  - MUSCULOSKELETAL STIFFNESS [None]
  - CHEST PAIN [None]
  - HEADACHE [None]
  - BLADDER DISORDER [None]
  - GAIT DISTURBANCE [None]
  - SENSATION OF HEAVINESS [None]
  - BACK PAIN [None]
  - VISUAL IMPAIRMENT [None]
  - MOBILITY DECREASED [None]
  - OEDEMA PERIPHERAL [None]
